FAERS Safety Report 6955816-4 (Version None)
Quarter: 2010Q3

REPORT INFORMATION
  Report Type: 
  Country: None (occurrence: None)
  Receive Date: 20100830
  Receipt Date: 20100825
  Transmission Date: 20110219
  Serious: Yes (Hospitalization)
  Sender: FDA-Public Use
  Company Number: US-ROCHE-722152

PATIENT
  Sex: Female
  Weight: 66.3 kg

DRUGS (10)
  1. TRASTUZUMAB [Suspect]
     Dosage: LOADING DOSE, FORM: VIAL
     Route: 042
     Dates: start: 20100628
  2. TRASTUZUMAB [Suspect]
     Route: 042
  3. TRASTUZUMAB [Suspect]
     Dosage: DOSE LEVEL: 6 MG/KG, FORM: VIALS, THIRD CYCLE
     Route: 042
     Dates: start: 20100809
  4. BEVACIZUMAB [Suspect]
     Dosage: DOSE LEVEL: 15 MG/KG, FORM: VIALS
     Route: 042
     Dates: start: 20100628
  5. BEVACIZUMAB [Suspect]
     Dosage: DOSE LEVEL: 15 MG/KG, FORM: VIALS, THIRD CYCLE
     Route: 042
     Dates: start: 20100809
  6. CARBOPLATIN [Suspect]
     Dosage: DOSE LEVEL: 6 AUC, FORM: VIALS
     Route: 042
     Dates: start: 20100628
  7. CARBOPLATIN [Suspect]
     Dosage: DOSE LEVEL: 6 AUC, FORM: VIALS,  THIRD CYCLE
     Route: 042
     Dates: start: 20100809
  8. DOCETAXEL [Suspect]
     Dosage: DOSE LEVEL: 75 MG/M2, FORM: VIAL
     Route: 042
     Dates: start: 20100628
  9. DOCETAXEL [Suspect]
     Dosage: DOSE LEVEL: 75 MG/M2, FORM: VIALS, THIRD CYCLE
     Route: 042
     Dates: start: 20100809
  10. NEULASTA [Concomitant]
     Dates: start: 20100810

REACTIONS (1)
  - DEHYDRATION [None]
